FAERS Safety Report 17050345 (Version 1)
Quarter: 2019Q4

REPORT INFORMATION
  Report Type: Report from Study
  Country: JP (occurrence: JP)
  Receive Date: 20191119
  Receipt Date: 20191119
  Transmission Date: 20200122
  Serious: Yes (Death)
  Sender: FDA-Public Use
  Company Number: JP-PFIZER INC-2019480770

PATIENT
  Age: 64 Year
  Sex: Male
  Weight: 54.6 kg

DRUGS (11)
  1. LYRICA [Concomitant]
     Active Substance: PREGABALIN
     Dosage: 50 MG, 2X/DAY
     Route: 048
     Dates: end: 20171119
  2. NEUROTROPIN [RABBIT VACCINIA EXTRACT] [Concomitant]
     Active Substance: ORYCTOLAGUS CUNICULUS SKIN
     Dosage: 8 DF, 2X/DAY
     Route: 048
     Dates: end: 20171119
  3. DOPS [Concomitant]
     Active Substance: DROXIDOPA
     Dosage: 200 MG, 2X/DAY
     Route: 048
     Dates: end: 20171119
  4. FAMOTIDINE D [Concomitant]
     Active Substance: FAMOTIDINE
     Dosage: 20 MG, 1X/DAY
     Route: 048
     Dates: end: 20171119
  5. SHAKUYAKUKANZOTO [Concomitant]
     Active Substance: HERBALS
     Dosage: UNK UNK, 1X/DAY
     Route: 048
     Dates: end: 20171119
  6. VYNDAQEL [Suspect]
     Active Substance: TAFAMIDIS MEGLUMINE
     Indication: HEREDITARY NEUROPATHIC AMYLOIDOSIS
     Dosage: 20 MG, 1X/DAY
     Dates: end: 20171119
  7. FOLIAMIN [Concomitant]
     Active Substance: FOLIC ACID
     Dosage: 5 MG, 1X/DAY
     Route: 048
     Dates: end: 20171119
  8. BIO-THREE [Concomitant]
     Active Substance: HERBALS
     Dosage: UNK UNK, 3X/DAY
     Route: 048
     Dates: end: 20171119
  9. VITAMEDIN [BENFOTIAMINE;CYANOCOBALAMIN;PYRIDOXINE HYDROCHLORIDE] [Concomitant]
     Dosage: UNK UNK, 3X/DAY
     Route: 048
     Dates: end: 20171119
  10. RISUMIC [Concomitant]
     Active Substance: AMEZINIUM METILSULFATE
     Dosage: 10 MG, 2X/DAY
     Route: 048
     Dates: end: 20171119
  11. VANARL N [Concomitant]
     Dosage: 100 MG, 3X/DAY
     Route: 048
     Dates: end: 20171119

REACTIONS (1)
  - Death [Fatal]

NARRATIVE: CASE EVENT DATE: 20171119
